FAERS Safety Report 7305362-3 (Version None)
Quarter: 2011Q1

REPORT INFORMATION
  Report Type: 
  Country: None (occurrence: None)
  Receive Date: 20110222
  Receipt Date: 20110208
  Transmission Date: 20110831
  Serious: Yes (Death, Hospitalization)
  Sender: FDA-Public Use
  Company Number: ES-CELGENEUS-144-50794-10102331

PATIENT
  Sex: Male

DRUGS (11)
  1. CITALOPRAM [Concomitant]
     Route: 065
  2. HYDROXYUREA [Concomitant]
     Indication: LEUKOCYTOSIS
     Route: 048
     Dates: start: 20090901, end: 20100601
  3. ERYTHROPOETIN [Concomitant]
     Route: 065
  4. TAMSULOSIN [Concomitant]
     Indication: PROSTATISM
     Route: 048
     Dates: start: 20040101, end: 20100101
  5. VIDAZA [Suspect]
     Route: 058
     Dates: start: 20100707, end: 20100801
  6. DEFERASIROX [Concomitant]
     Route: 065
  7. FINASTERIDE [Concomitant]
     Route: 065
  8. ONDANSETRON [Concomitant]
     Route: 065
  9. WHOLE BLOOD [Concomitant]
     Route: 065
  10. MEGESTROL ACETATE [Concomitant]
     Route: 065
  11. OMEPRAZOLE [Concomitant]
     Route: 065

REACTIONS (3)
  - DEMENTIA [None]
  - ASPIRATION [None]
  - VOMITING [None]
